FAERS Safety Report 6505441-4 (Version None)
Quarter: 2009Q4

REPORT INFORMATION
  Report Type: 
  Country: None (occurrence: None)
  Receive Date: 20091218
  Receipt Date: 20091216
  Transmission Date: 20100525
  Serious: Yes (Other)
  Sender: FDA-Public Use
  Company Number: US-BAYER-200939792NA

PATIENT
  Age: 29 Year
  Sex: Female

DRUGS (3)
  1. MIRENA [Suspect]
     Indication: CONTRACEPTION
     Dosage: CONTINUOUS
     Route: 015
     Dates: start: 20091105, end: 20091112
  2. VITAMINS NOS [Concomitant]
  3. CLARITIN [Concomitant]
     Indication: SEASONAL ALLERGY

REACTIONS (3)
  - DEVICE DISLOCATION [None]
  - PAIN [None]
  - VAGINAL HAEMORRHAGE [None]
